FAERS Safety Report 7183983-9 (Version None)
Quarter: 2010Q4

REPORT INFORMATION
  Report Type: 
  Country: None (occurrence: None)
  Receive Date: 20101222
  Receipt Date: 20101214
  Transmission Date: 20110411
  Serious: Yes (Hospitalization)
  Sender: FDA-Public Use
  Company Number: US-ROCHE-749166

PATIENT
  Age: 90 Year
  Sex: Female

DRUGS (1)
  1. XELODA [Suspect]
     Dosage: RECENTLY STARTED
     Route: 048

REACTIONS (1)
  - DYSPHAGIA [None]
